FAERS Safety Report 6889210-1 (Version None)
Quarter: 2010Q3

REPORT INFORMATION
  Report Type: 
  Country: None (occurrence: None)
  Receive Date: 20100730
  Receipt Date: 20080110
  Transmission Date: 20110219
  Serious: No
  Sender: FDA-Public Use
  Company Number: US-PFIZER INC-2006065970

PATIENT
  Sex: Female
  Weight: 52.16 kg

DRUGS (8)
  1. LIPITOR [Suspect]
     Indication: HYPERCHOLESTEROLAEMIA
     Route: 048
     Dates: start: 20060101, end: 20071201
  2. LIPITOR [Suspect]
     Indication: BLOOD CHOLESTEROL INCREASED
  3. CENTRUM SILVER [Concomitant]
  4. CALTRATE [Concomitant]
     Route: 065
  5. VITAMIN D [Concomitant]
  6. ALL OTHER THERAPEUTIC PRODUCTS [Concomitant]
  7. CENTRUM SILVER [Concomitant]
  8. CALTRATE + D [Concomitant]

REACTIONS (8)
  - ARTHRALGIA [None]
  - CHEST PAIN [None]
  - GOUT [None]
  - MUSCULOSKELETAL PAIN [None]
  - MYALGIA [None]
  - PAIN IN EXTREMITY [None]
  - PERIODONTAL DISEASE [None]
  - ROTATOR CUFF SYNDROME [None]
